FAERS Safety Report 11399615 (Version 1)
Quarter: 2015Q3

REPORT INFORMATION
  Report Type: Spontaneous
  Country: US (occurrence: None)
  Receive Date: 20150818
  Receipt Date: 20150818
  Transmission Date: 20151125
  Serious: No
  Sender: FDA-Public Use
  Company Number: None

PATIENT
  Age: 51 Year
  Sex: Male

DRUGS (1)
  1. HUMIRA [Suspect]
     Active Substance: ADALIMUMAB
     Indication: ARTHRITIS
     Dosage: 40 MG (1 PEN) EVERY OTHER WEEK SUBCUTANEOUS
     Route: 058

REACTIONS (5)
  - Feeling hot [None]
  - Infection [None]
  - Rash pruritic [None]
  - Rash erythematous [None]
  - Rash [None]

NARRATIVE: CASE EVENT DATE: 20150816
